FAERS Safety Report 4974485-6 (Version None)
Quarter: 2006Q1

REPORT INFORMATION
  Report Type: 
  Country: None (occurrence: None)
  Receive Date: 20060227
  Receipt Date: 20060124
  Transmission Date: 20060701
  Serious: No
  Sender: FDA-Public Use
  Company Number: PHEH2006US01297

PATIENT
  Age: 62 Year
  Sex: Female

DRUGS (1)
  1. ENABLEX [Suspect]
     Indication: BLADDER SPASM

REACTIONS (1)
  - HEADACHE [None]
